FAERS Safety Report 5517764-6 (Version None)
Quarter: 2007Q4

REPORT INFORMATION
  Report Type: 
  Country: None (occurrence: None)
  Receive Date: 20071114
  Receipt Date: 20071106
  Transmission Date: 20080405
  Serious: Yes (Death)
  Sender: FDA-Public Use
  Company Number: AU-GENENTECH-247855

PATIENT
  Age: 98 Year
  Sex: Female

DRUGS (1)
  1. LUCENTIS [Suspect]
     Indication: CHOROIDAL NEOVASCULARISATION
     Dates: start: 20070801

REACTIONS (2)
  - ASTHENIA [None]
  - RESPIRATORY ARREST [None]
